FAERS Safety Report 10948276 (Version 2)
Quarter: 2015Q2

REPORT INFORMATION
  Report Type: Report from Study
  Country: US (occurrence: US)
  Receive Date: 20150324
  Receipt Date: 20150420
  Transmission Date: 20150821
  Serious: Yes (Hospitalization, Other)
  Sender: FDA-Public Use
  Company Number: US-ROCHE-1545566

PATIENT
  Age: 76 Year
  Sex: Male
  Weight: 98.3 kg

DRUGS (9)
  1. BEVACIZUMAB [Suspect]
     Active Substance: BEVACIZUMAB
     Indication: DEDIFFERENTIATED LIPOSARCOMA
     Dosage: 25 MG/ML
     Route: 042
     Dates: start: 20150210
  2. GEMCITABINE [Concomitant]
     Active Substance: GEMCITABINE\GEMCITABINE HYDROCHLORIDE
     Dosage: C1D1
     Route: 042
     Dates: start: 20150210
  3. GEMCITABINE [Concomitant]
     Active Substance: GEMCITABINE\GEMCITABINE HYDROCHLORIDE
     Dosage: C1D8
     Route: 042
     Dates: start: 20150217
  4. DOCETAXEL. [Concomitant]
     Active Substance: DOCETAXEL
     Dosage: 75 MG/M2 C1 D8
     Route: 042
     Dates: start: 20150217
  5. LORTAB (UNITED STATES) [Concomitant]
     Dosage: 1 TABLET AS REQUIRED
     Route: 048
  6. AMLODIPINE [Concomitant]
     Active Substance: AMLODIPINE BESYLATE
     Route: 048
  7. MOTRIN [Concomitant]
     Active Substance: IBUPROFEN
     Dosage: WITH FOOD OR MILK
     Route: 048
  8. VALPROIC ACID. [Suspect]
     Active Substance: VALPROIC ACID
     Indication: DEDIFFERENTIATED LIPOSARCOMA
     Dosage: FOR 5 DAYS
     Route: 048
     Dates: start: 20150206, end: 20150210
  9. LORTAB (UNITED STATES) [Concomitant]
     Dosage: 1-2 TABLET AS REQUIRED
     Route: 048

REACTIONS (3)
  - Febrile neutropenia [Recovered/Resolved]
  - Lung infiltration [Recovered/Resolved]
  - Neutrophil count decreased [Recovered/Resolved]

NARRATIVE: CASE EVENT DATE: 20150224
